FAERS Safety Report 7901660-0 (Version None)
Quarter: 2011Q4

REPORT INFORMATION
  Report Type: 
  Country: None (occurrence: None)
  Receive Date: 20111108
  Receipt Date: 20111102
  Transmission Date: 20120403
  Serious: Yes (Death, Hospitalization)
  Sender: FDA-Public Use
  Company Number: CR-ROCHE-804065

PATIENT
  Sex: Male

DRUGS (1)
  1. MABTHERA [Suspect]
     Indication: NON-HODGKIN'S LYMPHOMA
     Dosage: DOSE: UNKNOWN
     Route: 042
     Dates: start: 20110615, end: 20111007

REACTIONS (3)
  - RENAL FAILURE [None]
  - WOUND COMPLICATION [None]
  - LUNG INFECTION [None]
